FAERS Safety Report 6005935-4 (Version None)
Quarter: 2008Q4

REPORT INFORMATION
  Report Type: 
  Country: None (occurrence: None)
  Receive Date: 20081215
  Receipt Date: 20081201
  Transmission Date: 20090506
  Serious: Yes (Hospitalization)
  Sender: FDA-Public Use
  Company Number: 1000003098

PATIENT
  Age: 42 Year
  Sex: Male

DRUGS (1)
  1. CAMPRAL [Suspect]
     Dosage: 6 DOSAGE FORMS (1 DOSAGE FORMS, 6 IN 1 D)
     Dates: end: 20081119

REACTIONS (3)
  - MUSCULAR WEAKNESS [None]
  - PAIN [None]
  - PETECHIAE [None]
